FAERS Safety Report 5839030-1 (Version None)
Quarter: 2008Q3

REPORT INFORMATION
  Report Type: 
  Country: None (occurrence: None)
  Receive Date: 20080808
  Receipt Date: 20080724
  Transmission Date: 20090109
  Serious: Yes (Other)
  Sender: FDA-Public Use
  Company Number: JP-GENENTECH-264485

PATIENT
  Sex: Female
  Weight: 43 kg

DRUGS (7)
  1. AVASTIN [Suspect]
     Indication: COLON CANCER METASTATIC
     Dosage: 5 MG/KG, UNK
     Route: 041
     Dates: start: 20071012
  2. FLUOROURACIL [Suspect]
     Indication: COLON CANCER METASTATIC
     Dosage: UNK
     Route: 042
     Dates: start: 20071012
  3. ISOVORIN [Suspect]
     Indication: COLON CANCER METASTATIC
     Dosage: UNK
     Route: 041
     Dates: start: 20071012
  4. IRINOTECAN HCL [Suspect]
     Indication: COLON CANCER METASTATIC
     Dosage: UNK
     Route: 041
     Dates: start: 20071012
  5. OXALIPLATIN [Concomitant]
     Indication: COLON CANCER METASTATIC
     Dosage: UNK
     Dates: start: 20071012
  6. PARIET [Concomitant]
     Indication: DRUG USE FOR UNKNOWN INDICATION
     Dosage: UNK
     Dates: start: 20070727
  7. BIO-THREE [Concomitant]
     Indication: DRUG USE FOR UNKNOWN INDICATION
     Dosage: UNK
     Dates: start: 20070727

REACTIONS (1)
  - HYPOTHYROIDISM [None]
